FAERS Safety Report 7515957-X (Version None)
Quarter: 2011Q2

REPORT INFORMATION
  Report Type: 
  Country: None (occurrence: None)
  Receive Date: 20110601
  Receipt Date: 20110511
  Transmission Date: 20111010
  Serious: No
  Sender: FDA-Public Use
  Company Number: US-JNJFOC-20110505433

PATIENT
  Age: 47 Year
  Sex: Female

DRUGS (2)
  1. ANTIHYPERTENSIVE [Concomitant]
     Indication: HYPERTENSION
     Route: 065
  2. INVEGA SUSTENNA [Suspect]
     Indication: SCHIZOPHRENIA
     Dosage: THE DOSE WAS 156 MG OR 117 MG AND DISCONTINUED IN 2011
     Route: 030
     Dates: start: 20110201

REACTIONS (1)
  - GALACTORRHOEA [None]
